FAERS Safety Report 13592632 (Version 1)
Quarter: 2017Q2

REPORT INFORMATION
  Report Type: Report from Study
  Country: IT (occurrence: IT)
  Receive Date: 20170530
  Receipt Date: 20170530
  Transmission Date: 20170830
  Serious: Yes (Hospitalization)
  Sender: FDA-Public Use
  Company Number: IT-TEVA-771308ACC

PATIENT
  Age: 71 Year
  Sex: Male

DRUGS (4)
  1. AMLODIPINE BESYLATE. [Suspect]
     Active Substance: AMLODIPINE BESYLATE
     Indication: PRODUCT USED FOR UNKNOWN INDICATION
     Route: 048
     Dates: start: 20160101, end: 20160709
  2. TRIATEC - SANOFI S.P.A. [Suspect]
     Active Substance: RAMIPRIL
     Indication: DIURETIC THERAPY
     Route: 048
     Dates: start: 20160101, end: 20160709
  3. PAROXETINE HYDROCHLORIDE. [Concomitant]
     Active Substance: PAROXETINE HYDROCHLORIDE
     Indication: PRODUCT USED FOR UNKNOWN INDICATION
     Route: 048
  4. ACETYLSALICYLIC ACID [Concomitant]
     Active Substance: ASPIRIN
     Indication: PRODUCT USED FOR UNKNOWN INDICATION
     Route: 048

REACTIONS (2)
  - Orthostatic hypotension [Unknown]
  - Syncope [Unknown]

NARRATIVE: CASE EVENT DATE: 20160709
